FAERS Safety Report 10010222 (Version 1)
Quarter: 2014Q1

REPORT INFORMATION
  Report Type: Spontaneous
  Country: US (occurrence: US)
  Receive Date: 20140312
  Receipt Date: 20140312
  Transmission Date: 20141002
  Serious: No
  Sender: FDA-Public Use
  Company Number: US-INCYTE CORPORATION-2013IN001784

PATIENT
  Sex: Male

DRUGS (3)
  1. JAKAFI [Suspect]
     Dosage: 5 MG, BID
     Route: 048
     Dates: start: 20130622, end: 20130805
  2. ALLOPURINOL [Concomitant]
  3. FUROSEMIDE [Concomitant]

REACTIONS (1)
  - Rash [Unknown]
